FAERS Safety Report 6721766-1 (Version None)
Quarter: 2010Q2

REPORT INFORMATION
  Report Type: 
  Country: None (occurrence: None)
  Receive Date: 20100510
  Receipt Date: 20100422
  Transmission Date: 20101027
  Serious: Yes (Other)
  Sender: FDA-Public Use
  Company Number: 2010S1000086

PATIENT
  Age: 66 Year
  Sex: Female
  Weight: 83.9154 kg

DRUGS (14)
  1. PHOSPHOSODA FLAVOR NOT SPECIFIED [Suspect]
     Indication: COLONOSCOPY
     Dosage: PO
     Route: 048
     Dates: start: 20070410
  2. ZETIA [Concomitant]
  3. ZOCOR [Concomitant]
  4. PRILOSEC /00661201/ [Concomitant]
  5. METOLAZONE [Concomitant]
  6. SYNTHROID [Concomitant]
  7. ATENOLOL [Concomitant]
  8. CLARITIN /00917501/ [Concomitant]
  9. SINGULAIR [Concomitant]
  10. MOBIC [Concomitant]
  11. ULTRAM ER [Concomitant]
  12. ASPIRIN [Concomitant]
  13. ADVAIR DISKUS 100/50 [Concomitant]
  14. ALBUTEROL [Concomitant]

REACTIONS (1)
  - RENAL FAILURE CHRONIC [None]
